FAERS Safety Report 18565017 (Version 2)
Quarter: 2021Q1

REPORT INFORMATION
  Report Type: Report from Study
  Country: US (occurrence: US)
  Receive Date: 20201201
  Receipt Date: 20210226
  Transmission Date: 20210419
  Serious: Yes (Other)
  Sender: FDA-Public Use
  Company Number: US-TAKEDA-2020TUS001002

PATIENT
  Sex: Male

DRUGS (1)
  1. VEDOLIZUMAB [Suspect]
     Active Substance: VEDOLIZUMAB
     Indication: COLITIS ULCERATIVE
     Dosage: 300 MILLIGRAM, Q6WEEKS
     Route: 042

REACTIONS (5)
  - Colitis ulcerative [Unknown]
  - Staphylococcal infection [Unknown]
  - Off label use [Unknown]
  - Bone cancer [Unknown]
  - Hypoacusis [Unknown]

NARRATIVE: CASE EVENT DATE: 2019
